FAERS Safety Report 8579991 (Version 2)
Quarter: 2014Q1

REPORT INFORMATION
  Report Type: Spontaneous
  Country: US (occurrence: None)
  Receive Date: 20120323
  Receipt Date: 20130305
  Transmission Date: 20141002
  Serious: Yes (Other)
  Sender: FDA-Public Use
  Company Number: 163-21880-11112778

PATIENT
  Age: 65 Year
  Sex: Female
  Weight: 61.2 kg

DRUGS (11)
  1. REVLIMID [Suspect]
     Indication: CHRONIC LYMPHOCYTIC LEUKAEMIA
     Route: 048
     Dates: start: 20090722
  2. AMBIEN [Concomitant]
  3. ASTEPRO (AZELASTINE HYDROCHLORIDE) (SPRAY (NOT INHALATION)) [Concomitant]
  4. CHOLESTYRAMINE [Concomitant]
  5. COUMADIN [Concomitant]
  6. KAPIDEX (DEXLANSOPRAZOLE) (TABLETS) [Concomitant]
  7. PRILOSEC (OMEPRAZOLE) (TABLETS) [Concomitant]
  8. VALTREX [Concomitant]
  9. VERAMYST (FLUTICASONE FUROATE) [Concomitant]
  10. ZOLOFT (SERTRALINE HYDROCHLORIDE) (TABLETS) [Concomitant]
  11. ZYRTEC (CETIRIZINE HYDROCHLORIDE) (TABLETS) [Concomitant]

REACTIONS (1)
  - Neutropenia [None]
